FAERS Safety Report 15750334 (Version 1)
Quarter: 2018Q4

REPORT INFORMATION
  Report Type: Spontaneous
  Country: US (occurrence: US)
  Receive Date: 20181221
  Receipt Date: 20181221
  Transmission Date: 20190205
  Serious: Yes (Hospitalization, Other)
  Sender: FDA-Public Use
  Company Number: US-APOTEX-2018AP027330

PATIENT
  Age: 22 Year
  Sex: Female

DRUGS (16)
  1. FENTANYL. [Suspect]
     Active Substance: FENTANYL
     Indication: TACHYPNOEA
     Dosage: UNK
     Route: 065
  2. LABETALOL [Suspect]
     Active Substance: LABETALOL\LABETALOL HYDROCHLORIDE
     Indication: HYPERTENSION
  3. MILRINONE [Suspect]
     Active Substance: MILRINONE
     Indication: PULMONARY VASCULAR RESISTANCE ABNORMALITY
     Dosage: DOSE INCREASED WITH 40 MCG/MIN
     Route: 042
  4. NITROGLYCERIN. [Suspect]
     Active Substance: NITROGLYCERIN
     Indication: PRODUCT USED FOR UNKNOWN INDICATION
  5. ROCURONIUM [Suspect]
     Active Substance: ROCURONIUM BROMIDE
     Indication: TACHYPNOEA
     Dosage: UNK
     Route: 065
  6. NOREPINEPHRINE. [Suspect]
     Active Substance: NOREPINEPHRINE
     Indication: CARDIOGENIC SHOCK
     Dosage: UNK
     Route: 042
  7. MIDAZOLAM [Suspect]
     Active Substance: MIDAZOLAM HYDROCHLORIDE
     Indication: HYPOVENTILATION
  8. FENTANYL. [Suspect]
     Active Substance: FENTANYL
     Indication: HYPOVENTILATION
  9. PIPERACILLIN AND TAZOBACTAM [Suspect]
     Active Substance: PIPERACILLIN SODIUM\TAZOBACTAM SODIUM
     Indication: PNEUMONIA ASPIRATION
  10. NOREPINEPHRINE. [Suspect]
     Active Substance: NOREPINEPHRINE
     Dosage: DOSE INCREASED WITH 32 MCG/MIN
     Route: 042
  11. LABETALOL [Suspect]
     Active Substance: LABETALOL\LABETALOL HYDROCHLORIDE
     Indication: TACHYCARDIA
     Dosage: 5 MG, UNK
     Route: 065
  12. PIPERACILLIN AND TAZOBACTAM [Suspect]
     Active Substance: PIPERACILLIN SODIUM\TAZOBACTAM SODIUM
     Indication: EVIDENCE BASED TREATMENT
  13. MIDAZOLAM [Suspect]
     Active Substance: MIDAZOLAM HYDROCHLORIDE
     Indication: TACHYPNOEA
     Dosage: UNK
     Route: 065
  14. ROCURONIUM [Suspect]
     Active Substance: ROCURONIUM BROMIDE
     Indication: HYPOVENTILATION
  15. MILRINONE [Suspect]
     Active Substance: MILRINONE
     Indication: DECREASED VENTRICULAR AFTERLOAD
     Dosage: UNK
     Route: 042
  16. VASOPRESSIN. [Suspect]
     Active Substance: VASOPRESSIN
     Indication: CARDIOGENIC SHOCK
     Dosage: DOSE INCREASED WITH 0.04 UNITS/MIN
     Route: 042

REACTIONS (2)
  - Drug ineffective [Unknown]
  - Cardiac arrest [Recovered/Resolved]
